FAERS Safety Report 4744587-8 (Version None)
Quarter: 2005Q3

REPORT INFORMATION
  Report Type: 
  Country: None (occurrence: None)
  Receive Date: 20050812
  Receipt Date: 20050721
  Transmission Date: 20060218
  Serious: Yes (Death, Other)
  Sender: FDA-Public Use
  Company Number: 2005-DE-02860GD

PATIENT
  Age: 58 Year
  Sex: Female

DRUGS (6)
  1. MORPHINE [Suspect]
     Indication: PAIN
     Dosage: TITRATION TO 2 MG/HOUR, IV
     Route: 042
  2. MIRTAZAPINE [Suspect]
  3. FAMOTIDINE [Suspect]
  4. OLANZAPINE [Suspect]
     Indication: NAUSEA
     Dosage: SEE TEXT (, TWICE DAILY, EVERY 4 - 6 HOURS AS NEEDED), PO
     Route: 048
  5. OCTREOTIDE ACETATE [Concomitant]
  6. ESOMEPRAZOLE (ESOMEPRAZOLE) [Concomitant]

REACTIONS (9)
  - COGNITIVE DISORDER [None]
  - DELIRIUM [None]
  - DRUG TOXICITY [None]
  - HALLUCINATION, VISUAL [None]
  - MYOCLONUS [None]
  - NAUSEA [None]
  - NEUROTOXICITY [None]
  - RENAL FAILURE [None]
  - VOMITING [None]
